FAERS Safety Report 26038437 (Version 1)
Quarter: 2025Q4

REPORT INFORMATION
  Report Type: Spontaneous
  Country: US (occurrence: US)
  Receive Date: 20251113
  Receipt Date: 20251113
  Transmission Date: 20260118
  Serious: No
  Sender: Kenvue
  Company Number: US-KENVUE-20251103813

PATIENT
  Sex: Female

DRUGS (11)
  1. WOMENS ROGAINE UNSCENTED [Suspect]
     Active Substance: MINOXIDIL
     Indication: Alopecia
     Route: 061
  2. hers hairblends with minoxidil biotin vitamins B5/6/C + zinc [Concomitant]
     Indication: Alopecia
     Route: 065
  3. Unspecified facial oil blend with castor oil [Concomitant]
     Indication: Product used for unknown indication
     Route: 065
  4. Bio Mimic Foundation Spectrum by Forever Bloom [Concomitant]
     Indication: Product used for unknown indication
     Route: 065
  5. ELF bronzing drops [Concomitant]
     Indication: Product used for unknown indication
     Route: 065
  6. e.l.f. Monochromatic Multi Stick (Glowing Mango) [Concomitant]
     Indication: Product used for unknown indication
     Route: 065
  7. Iced coffee lip balm [Concomitant]
     Indication: Product used for unknown indication
     Route: 065
  8. ILIA Fullest Volumizing Mascara [Concomitant]
     Indication: Product used for unknown indication
     Route: 065
  9. unspecified Vaginal estrogen cream [Concomitant]
     Indication: Product used for unknown indication
     Route: 065
  10. Simply Vital CRHA cream [Concomitant]
     Indication: Product used for unknown indication
     Route: 065
  11. Glucagon-like peptide-1 (GLP-1) analogues [Concomitant]
     Indication: Product used for unknown indication

REACTIONS (2)
  - Therapeutic response unexpected [Unknown]
  - Off label use [Unknown]
